FAERS Safety Report 10879678 (Version 1)
Quarter: 2015Q1

REPORT INFORMATION
  Report Type: Spontaneous
  Country: US (occurrence: US)
  Receive Date: 20150302
  Receipt Date: 20150302
  Transmission Date: 20150721
  Serious: Yes (Other)
  Sender: FDA-Public Use
  Company Number: US-TEVA-543759USA

PATIENT
  Age: 29 Week
  Sex: Male

DRUGS (3)
  1. NIFEDIPINE. [Concomitant]
     Active Substance: NIFEDIPINE
     Indication: HYPERTENSION
     Route: 064
  2. HYDRALAZINE [Concomitant]
     Active Substance: HYDRALAZINE HYDROCHLORIDE
     Indication: HYPERTENSION
     Route: 064
  3. LABETALOL [Suspect]
     Active Substance: LABETALOL\LABETALOL HYDROCHLORIDE
     Indication: HYPERTENSION
     Route: 064

REACTIONS (7)
  - Neonatal hypoxia [Recovered/Resolved]
  - Neonatal hypotension [Recovered/Resolved]
  - Foetal exposure during pregnancy [Recovered/Resolved]
  - Hypoglycaemia neonatal [Recovered/Resolved]
  - Bradycardia foetal [Recovered/Resolved]
  - Bradycardia neonatal [Recovered/Resolved]
  - Renal failure neonatal [Recovered/Resolved]
